FAERS Safety Report 15371040 (Version 1)
Quarter: 2018Q4

REPORT INFORMATION
  Report Type: Spontaneous
  Country: FR (occurrence: FR)
  Receive Date: 20180911
  Receipt Date: 20180911
  Transmission Date: 20190204
  Serious: Yes (Hospitalization)
  Sender: FDA-Public Use
  Company Number: FR-GLAXOSMITHKLINE-FR2018143889

PATIENT
  Age: 49 Year
  Sex: Male

DRUGS (16)
  1. AERIUS (DESLORATADINE) [Suspect]
     Active Substance: DESLORATADINE
     Indication: PRODUCT USED FOR UNKNOWN INDICATION
     Dosage: 5 MG, QD
     Route: 048
     Dates: start: 20180706, end: 20180710
  2. TELMISARTAN. [Concomitant]
     Active Substance: TELMISARTAN
     Indication: PRODUCT USED FOR UNKNOWN INDICATION
     Dosage: 40 MG, QD
     Route: 048
  3. TELMISARTAN. [Concomitant]
     Active Substance: TELMISARTAN
     Dosage: 40 MG, OM
     Route: 048
  4. TERBINAFINE HYDROCHLORIDE. [Suspect]
     Active Substance: TERBINAFINE HYDROCHLORIDE
     Indication: INTERTRIGO
     Dosage: 250 MG, QD
     Route: 048
     Dates: start: 20180706, end: 20180710
  5. NABUCOX [Suspect]
     Active Substance: NABUMETONE
     Indication: INTERTRIGO
  6. PARACETAMOL [Concomitant]
     Active Substance: ACETAMINOPHEN
     Dosage: 3 G, QD
     Route: 048
  7. LAMISIL [Suspect]
     Active Substance: TERBINAFINE HYDROCHLORIDE
     Indication: INTERTRIGO
     Dosage: 1 APPLICATION TWICE A DAY
     Route: 003
     Dates: start: 20180706, end: 20180710
  8. OFLOCET [Suspect]
     Active Substance: OFLOXACIN
     Indication: OTITIS EXTERNA
     Dosage: 4.5 MG, QD
     Route: 001
     Dates: start: 20180708, end: 20180710
  9. PYOSTACINE [Suspect]
     Active Substance: PRISTINAMYCIN
     Indication: ERYSIPELAS
     Dosage: 3 G, QD
     Route: 048
     Dates: start: 20180702, end: 20180710
  10. CHLORHEXIDINE GLUCONATE + CHLOROCRESOL + HEXAMIDINE ISETIONATE [Suspect]
     Active Substance: CHLORHEXIDINE GLUCONATE\CHLOROCRESOL\HEXAMIDINE DIISETHIONATE
     Indication: INTERTRIGO
     Dosage: UNK
     Route: 003
     Dates: start: 20180628, end: 20180710
  11. IBUPROFEN. [Suspect]
     Active Substance: IBUPROFEN
     Indication: INTERTRIGO
     Dosage: 1 DF, TID
     Route: 003
     Dates: start: 20180628, end: 20180710
  12. AERIUS (DESLORATADINE) [Suspect]
     Active Substance: DESLORATADINE
     Dosage: UNK
     Dates: end: 20180710
  13. FENOFIBRATE. [Concomitant]
     Active Substance: FENOFIBRATE
     Indication: PRODUCT USED FOR UNKNOWN INDICATION
     Dosage: 160 MG ON THE EVENING
     Route: 048
  14. FENOFIBRATE. [Concomitant]
     Active Substance: FENOFIBRATE
     Dosage: 160 MG, HS
     Route: 048
  15. NABUCOX [Suspect]
     Active Substance: NABUMETONE
     Indication: INTERTRIGO
     Dosage: 2 G, QD
     Route: 048
     Dates: start: 20180628, end: 20180710
  16. PARACETAMOL [Concomitant]
     Active Substance: ACETAMINOPHEN
     Indication: PRODUCT USED FOR UNKNOWN INDICATION
     Dosage: 3 G, QD
     Route: 048

REACTIONS (1)
  - Rash maculo-papular [Not Recovered/Not Resolved]

NARRATIVE: CASE EVENT DATE: 20180710
